FAERS Safety Report 15867257 (Version 1)
Quarter: 2019Q1

REPORT INFORMATION
  Report Type: Spontaneous
  Country: US (occurrence: US)
  Receive Date: 20190125
  Receipt Date: 20190125
  Transmission Date: 20190417
  Serious: Yes (Hospitalization, Disabling, Other)
  Sender: FDA-Public Use
  Company Number: None

PATIENT
  Age: 59 Year
  Sex: Female
  Weight: 78.75 kg

DRUGS (2)
  1. INTRAROSA [Suspect]
     Active Substance: PRASTERONE
     Indication: VULVOVAGINAL DRYNESS
     Dosage: ?          QUANTITY:1 SUPPOSITORY VAGINA;?
     Route: 067
     Dates: start: 20180426, end: 20180515
  2. INTRAROSA [Suspect]
     Active Substance: PRASTERONE
     Indication: DYSPAREUNIA
     Dosage: ?          QUANTITY:1 SUPPOSITORY VAGINA;?
     Route: 067
     Dates: start: 20180426, end: 20180515

REACTIONS (5)
  - Tooth infection [None]
  - Gingivitis [None]
  - Gingival abscess [None]
  - Gingival pain [None]
  - Toothache [None]

NARRATIVE: CASE EVENT DATE: 20180501
